FAERS Safety Report 6227539-0 (Version None)
Quarter: 2009Q2

REPORT INFORMATION
  Report Type: 
  Country: None (occurrence: None)
  Receive Date: 20090612
  Receipt Date: 20090602
  Transmission Date: 20091009
  Serious: Yes (Hospitalization)
  Sender: FDA-Public Use
  Company Number: CA-PFIZER INC-2009222054

PATIENT

DRUGS (4)
  1. CHAMPIX [Interacting]
     Dosage: UNK
     Dates: start: 20081201
  2. XANAX [Suspect]
     Indication: DEPRESSION
     Dosage: UNK
     Dates: start: 20080801
  3. LYRICA [Interacting]
     Indication: DEPRESSION
     Dosage: UNK
     Dates: start: 20080801
  4. WELLBUTRIN [Interacting]
     Indication: DEPRESSION
     Dosage: UNK
     Dates: start: 20080801

REACTIONS (2)
  - DRUG INTERACTION [None]
  - EPILEPSY [None]
